FAERS Safety Report 23206108 (Version 1)
Quarter: 2023Q4

REPORT INFORMATION
  Report Type: Report from Study
  Country: FR (occurrence: FR)
  Receive Date: 20231120
  Receipt Date: 20231120
  Transmission Date: 20240109
  Serious: Yes (Hospitalization)
  Sender: FDA-Public Use
  Company Number: FR-ALXN-202311GLO000014FR

PATIENT
  Age: 62 Year
  Sex: Male
  Weight: 73 kg

DRUGS (5)
  1. SOLIRIS [Suspect]
     Active Substance: ECULIZUMAB
     Indication: Atypical haemolytic uraemic syndrome
     Dosage: 1200 MILLIGRAM
     Route: 042
     Dates: start: 20130610
  2. PROGRAF [Concomitant]
     Active Substance: TACROLIMUS
     Indication: Prophylaxis against transplant rejection
     Dosage: 1 MILLIGRAM, BID
     Route: 048
     Dates: start: 20220520, end: 20230122
  3. CLOPIDOGREL BISULFATE [Concomitant]
     Active Substance: CLOPIDOGREL BISULFATE
     Indication: Myocardial ischaemia
     Dosage: 75 MILLIGRAM, QD
     Route: 048
     Dates: start: 20220729
  4. ATORVASTATIN [Concomitant]
     Active Substance: ATORVASTATIN
     Indication: Myocardial ischaemia
     Dosage: 40 MILLIGRAM, QD
     Route: 048
     Dates: start: 20220730
  5. CELLCEPT [Concomitant]
     Active Substance: MYCOPHENOLATE MOFETIL
     Indication: Prophylaxis
     Dosage: 750 MILLIGRAM, BID
     Route: 048
     Dates: start: 2013

REACTIONS (1)
  - Stenosis [Recovered/Resolved]

NARRATIVE: CASE EVENT DATE: 20220729
